FAERS Safety Report 5265240-0 (Version None)
Quarter: 2007Q1

REPORT INFORMATION
  Report Type: 
  Country: None (occurrence: None)
  Receive Date: 20061213
  Receipt Date: 20060127
  Transmission Date: 20070707
  Serious: No
  Sender: FDA-Public Use
  Company Number: 2006UW01564

PATIENT
  Sex: Female

DRUGS (2)
  1. TAMOXIFEN CITRATE [Suspect]
     Indication: BREAST CANCER
  2. ARIMIDEX [Concomitant]

REACTIONS (4)
  - BREAST CANCER RECURRENT [None]
  - DIZZINESS [None]
  - HOT FLUSH [None]
  - VISUAL DISTURBANCE [None]
